FAERS Safety Report 8582224-5 (Version None)
Quarter: 2012Q3

REPORT INFORMATION
  Report Type: 
  Country: None (occurrence: None)
  Receive Date: 20120809
  Receipt Date: 20120730
  Transmission Date: 20120928
  Serious: Yes (Hospitalization)
  Sender: FDA-Public Use
  Company Number: US-ELI_LILLY_AND_COMPANY-US201112005069

PATIENT
  Sex: Female

DRUGS (3)
  1. ADIPEX-P [Concomitant]
     Dosage: UNK
     Dates: end: 20120201
  2. FORTEO [Suspect]
     Dosage: 20 UG, QD
     Route: 058
     Dates: start: 20110413, end: 20120723
  3. LIBRIUM [Concomitant]

REACTIONS (6)
  - NAUSEA [None]
  - HERNIA [None]
  - DEPRESSION [None]
  - BLOOD CALCIUM INCREASED [None]
  - SURGERY [None]
  - ABDOMINAL DISCOMFORT [None]
